FAERS Safety Report 8260812-3 (Version None)
Quarter: 2012Q1

REPORT INFORMATION
  Report Type: 
  Country: None (occurrence: None)
  Receive Date: 20120327
  Receipt Date: 20090612
  Transmission Date: 20120608
  Serious: Yes (Other)
  Sender: FDA-Public Use
  Company Number: PHEH2009US04103

PATIENT
  Age: 60 Year
  Sex: Male

DRUGS (1)
  1. GLEEVEC [Suspect]
     Indication: BONE MARROW FAILURE
     Dosage: 400 MG, QD, ORAL; 400 MG, QD, ORAL
     Route: 048
     Dates: start: 20090116, end: 20090323

REACTIONS (3)
  - NEUTROPENIA [None]
  - BONE MARROW FAILURE [None]
  - WHITE BLOOD CELL COUNT DECREASED [None]
